FAERS Safety Report 17736132 (Version 3)
Quarter: 2020Q2

REPORT INFORMATION
  Report Type: Spontaneous
  Country: AU (occurrence: AU)
  Receive Date: 20200501
  Receipt Date: 20200511
  Transmission Date: 20200714
  Serious: Yes (Other)
  Sender: FDA-Public Use
  Company Number: AU-PFIZER INC-2020174653

PATIENT
  Age: 31 Year
  Sex: Male
  Weight: 93 kg

DRUGS (5)
  1. CLOPINE [Suspect]
     Active Substance: CLOZAPINE
     Dosage: 750 MG (NOCTE)
     Dates: start: 20111006
  2. ATORVASTATIN CALCIUM. [Suspect]
     Active Substance: ATORVASTATIN CALCIUM
     Indication: DYSLIPIDAEMIA
     Dosage: UNK
     Dates: end: 201903
  3. PANTOPRAZOLE [Suspect]
     Active Substance: PANTOPRAZOLE
     Dosage: 20 MG (NOCTE)
  4. ASASANTIN [Suspect]
     Active Substance: ASPIRIN\DIPYRIDAMOLE
     Dosage: UNK (200/25MG (OD))
  5. QUETIAPINE XR [Suspect]
     Active Substance: QUETIAPINE
     Dosage: 50 MG (NOCTE)

REACTIONS (8)
  - Blood creatine phosphokinase increased [Unknown]
  - Cardiac disorder [Unknown]
  - Neutrophilia [Unknown]
  - Electrocardiogram QT prolonged [Unknown]
  - Bundle branch block left [Unknown]
  - Sinus tachycardia [Unknown]
  - Electrocardiogram ST-T change [Unknown]
  - ECG signs of myocardial ischaemia [Unknown]

NARRATIVE: CASE EVENT DATE: 20180926
